FAERS Safety Report 9891704 (Version 3)
Quarter: 2014Q1

REPORT INFORMATION
  Report Type: Spontaneous
  Country: US (occurrence: US)
  Receive Date: 20140212
  Receipt Date: 20140303
  Transmission Date: 20141002
  Serious: Yes (Other)
  Sender: FDA-Public Use
  Company Number: US-PFIZER INC-2014037220

PATIENT
  Age: 78 Year
  Sex: Female

DRUGS (3)
  1. REVATIO [Suspect]
     Indication: PULMONARY HYPERTENSION
     Dosage: 3 DF, DAILY
     Dates: start: 201401, end: 2014
  2. REVATIO [Suspect]
     Dosage: 20 MG, 3X/DAY
     Dates: start: 20140203, end: 201402
  3. REVATIO [Suspect]
     Dosage: UNK

REACTIONS (6)
  - Gait disturbance [Unknown]
  - Oxygen saturation decreased [Unknown]
  - Dyspnoea [Unknown]
  - Asthenia [Unknown]
  - Dizziness [Unknown]
  - Insomnia [Unknown]
